FAERS Safety Report 25135620 (Version 1)
Quarter: 2025Q1

REPORT INFORMATION
  Report Type: Spontaneous
  Country: CN (occurrence: CN)
  Receive Date: 20250328
  Receipt Date: 20250328
  Transmission Date: 20250409
  Serious: Yes (Other)
  Sender: BRAINTREE
  Company Number: CN-BRAINTREE LABORATORIES, INC.-2025BTE00175

PATIENT
  Age: 60 Year
  Sex: Male

DRUGS (1)
  1. SUPREP BOWEL PREP [Suspect]
     Active Substance: MAGNESIUM SULFATE\POTASSIUM SULFATE\SODIUM SULFATE
     Indication: Bowel preparation

REACTIONS (1)
  - Colitis ischaemic [Unknown]
